FAERS Safety Report 22124397 (Version 4)
Quarter: 2023Q2

REPORT INFORMATION
  Report Type: Report from Study
  Country: ES (occurrence: None)
  Receive Date: 20230322
  Receipt Date: 20230428
  Transmission Date: 20230722
  Serious: Yes (Hospitalization)
  Sender: FDA-Public Use
  Company Number: ES-ROCHE-3310125

PATIENT
  Age: 53 Year
  Sex: Female
  Weight: 55 kg

DRUGS (12)
  1. GLOFITAMAB [Suspect]
     Active Substance: GLOFITAMAB
     Indication: B-cell lymphoma
     Dosage: ON 29/NOV/2022 12:50 PM, SHE RECEIVED MOST RECENT DOSE 30 MG OF STUDY DRUG GLOFITAMAB PRIOR TO SAE
     Route: 042
     Dates: start: 20220405
  2. OBINUTUZUMAB [Suspect]
     Active Substance: OBINUTUZUMAB
     Indication: B-cell lymphoma
     Dosage: ON 29/MAR/2022 1:00 PM- 1:04 PM, SHE RECEIVED MOST RECENT DOSE 1000 MG OF STUDY DRUG OBINUTUZUMAB PR
     Route: 042
     Dates: start: 20220329
  3. TOCILIZUMAB [Suspect]
     Active Substance: TOCILIZUMAB
     Indication: B-cell lymphoma
     Route: 042
     Dates: start: 20220405
  4. DEXAMETHASONE [Concomitant]
     Active Substance: DEXAMETHASONE
     Indication: Cytokine release syndrome
     Route: 042
     Dates: start: 20220405
  5. DEXAMETHASONE [Concomitant]
     Active Substance: DEXAMETHASONE
     Indication: Cytokine release syndrome
     Route: 042
     Dates: start: 20220421
  6. EMULIQUEN [Concomitant]
     Indication: Constipation
     Route: 048
     Dates: start: 20220418
  7. LORAZEPAM [Concomitant]
     Active Substance: LORAZEPAM
     Route: 065
     Dates: start: 20220329
  8. ACYCLOVIR [Concomitant]
     Active Substance: ACYCLOVIR
     Route: 065
     Dates: start: 20220409
  9. SULFAMETHOXAZOLE\TRIMETHOPRIM [Concomitant]
     Active Substance: SULFAMETHOXAZOLE\TRIMETHOPRIM
     Route: 065
  10. POLARAMINE [Concomitant]
     Active Substance: DEXCHLORPHENIRAMINE MALEATE
     Route: 065
     Dates: start: 20220427
  11. OMEPRAZOLE [Concomitant]
     Active Substance: OMEPRAZOLE
     Route: 065
     Dates: start: 20220419
  12. METOCLOPRAMIDE [Concomitant]
     Active Substance: METOCLOPRAMIDE
     Dates: start: 20220419

REACTIONS (1)
  - Pyrexia [Recovered/Resolved]

NARRATIVE: CASE EVENT DATE: 20230314
